FAERS Safety Report 4965369-8 (Version None)
Quarter: 2006Q2

REPORT INFORMATION
  Report Type: 
  Country: None (occurrence: None)
  Receive Date: 20060406
  Receipt Date: 20060313
  Transmission Date: 20061013
  Serious: Yes (Hospitalization)
  Sender: FDA-Public Use
  Company Number: US-MERCK-0603USA02282

PATIENT
  Age: 57 Year
  Sex: Female
  Weight: 91 kg

DRUGS (8)
  1. VIOXX [Suspect]
     Indication: PAIN MANAGEMENT
     Route: 048
     Dates: start: 20031201, end: 20040301
  2. ADVAIR DISKUS 100/50 [Concomitant]
     Route: 065
  3. ALBUTEROL [Concomitant]
     Route: 065
  4. GLIPIZIDE [Concomitant]
     Route: 065
  5. NORVASC [Concomitant]
     Route: 065
  6. PREDNISONE [Concomitant]
     Route: 065
  7. SINGULAIR [Concomitant]
     Route: 065
  8. THEOPHYLLINE [Concomitant]
     Route: 065

REACTIONS (3)
  - ASTHMA [None]
  - CEREBROVASCULAR ACCIDENT [None]
  - CHEST PAIN [None]
